FAERS Safety Report 4306869-3 (Version None)
Quarter: 2004Q1

REPORT INFORMATION
  Report Type: 
  Country: None (occurrence: None)
  Receive Date: 20040227
  Receipt Date: 19991018
  Transmission Date: 20041129
  Serious: Yes (Death, Life-Threatening, Hospitalization, Disabling)
  Sender: FDA-Public Use
  Company Number: FR-GLAXOSMITHKLINE-B0108462A

PATIENT
  Age: 37 Year
  Sex: Female

DRUGS (4)
  1. TRACRIUM [Suspect]
     Route: 042
     Dates: start: 19990629, end: 19990629
  2. SUCCINYLCHOLINE CHLORIDE [Suspect]
     Route: 042
     Dates: start: 19990629, end: 19990629
  3. PROPOFOL [Suspect]
     Route: 042
     Dates: start: 19990629, end: 19990629
  4. NITROUS OXIDE [Concomitant]
     Route: 055
     Dates: start: 19990629, end: 19990629

REACTIONS (11)
  - ANAPHYLACTIC SHOCK [None]
  - APALLIC SYNDROME [None]
  - ATRIOVENTRICULAR BLOCK [None]
  - BRADYCARDIA [None]
  - CARDIAC ARREST [None]
  - COMA [None]
  - DEATH [None]
  - HYPOTENSION [None]
  - NERVOUS SYSTEM DISORDER [None]
  - PALLOR [None]
  - PILOERECTION [None]
